FAERS Safety Report 21871292 (Version 1)
Quarter: 2023Q1

REPORT INFORMATION
  Report Type: Spontaneous
  Country: FI (occurrence: FI)
  Receive Date: 20230117
  Receipt Date: 20230117
  Transmission Date: 20230418
  Serious: Yes (Other)
  Sender: FDA-Public Use
  Company Number: FI-OCTA-WIL00123FI

PATIENT
  Age: 28 Year
  Sex: Female

DRUGS (1)
  1. WILATE - VON WILLEBRAND FACTOR/COAGULATION FACTOR VIII COMPLEX (HUMAN) [Suspect]
     Active Substance: HUMAN COAGULATION FACTOR VIII/VON WILLEBRAND FACTOR COMPLEX
     Indication: Product used for unknown indication
     Route: 042
     Dates: start: 20230103, end: 20230103

REACTIONS (8)
  - Malaise [Unknown]
  - Tremor [Unknown]
  - Pallor [Unknown]
  - Heart rate increased [Unknown]
  - Hypoaesthesia [Unknown]
  - Urticaria [Unknown]
  - Hypertension [Unknown]
  - Chest discomfort [Unknown]

NARRATIVE: CASE EVENT DATE: 20230103
